FAERS Safety Report 23186101 (Version 1)
Quarter: 2023Q4

REPORT INFORMATION
  Report Type: Report from Study
  Country: CO (occurrence: CO)
  Receive Date: 20231115
  Receipt Date: 20231115
  Transmission Date: 20240110
  Serious: Yes (Hospitalization, Other)
  Sender: FDA-Public Use
  Company Number: CO-TAKEDA-2023TUS110447

PATIENT
  Age: 66 Year
  Sex: Male
  Weight: 69 kg

DRUGS (1)
  1. VEDOLIZUMAB [Suspect]
     Active Substance: VEDOLIZUMAB
     Indication: Crohn^s disease
     Dosage: 300 MILLIGRAM
     Route: 042
     Dates: start: 20230228

REACTIONS (4)
  - Choking [Recovering/Resolving]
  - Nail discolouration [Recovering/Resolving]
  - Dyspnoea [Recovering/Resolving]
  - Lip discolouration [Recovering/Resolving]

NARRATIVE: CASE EVENT DATE: 20231108
